FAERS Safety Report 15909463 (Version 5)
Quarter: 2020Q1

REPORT INFORMATION
  Report Type: Spontaneous
  Country: FR (occurrence: FR)
  Receive Date: 20190204
  Receipt Date: 20200311
  Transmission Date: 20200409
  Serious: Yes (Hospitalization, Disabling, Other)
  Sender: FDA-Public Use
  Company Number: FR-ALLERGAN-1904867US

PATIENT
  Sex: Female
  Weight: 94.9 kg

DRUGS (18)
  1. VOGALENE [Suspect]
     Active Substance: METOPIMAZINE
     Indication: NAUSEA
     Dosage: 7.5 MG, TID
     Route: 065
  2. BACLOFEN. [Concomitant]
     Active Substance: BACLOFEN
     Dosage: UNK
     Dates: start: 20160817
  3. MODOPAR [Concomitant]
     Active Substance: BENSERAZIDE HYDROCHLORIDE\LEVODOPA
     Dosage: 62.5 MG, QD
     Dates: start: 20161201
  4. LAROXYL [Concomitant]
     Active Substance: AMITRIPTYLINE HYDROCHLORIDE
     Indication: DEPRESSION
     Dosage: UNK
     Dates: start: 20161220, end: 20170111
  5. ALDACTAZINE [Concomitant]
     Active Substance: ALTHIAZIDE\SPIRONOLACTONE
     Indication: HYPERTENSION
     Dosage: 0.5 DF, QAM
     Route: 065
     Dates: start: 201311
  6. LUMIRELAX [Concomitant]
     Dosage: 2 DF, TID
     Route: 048
     Dates: start: 20160415
  7. LEPTICUR [Concomitant]
     Active Substance: TROPATEPINE HYDROCHLORIDE
     Dosage: 0.5 DF, QD
     Dates: start: 20160628
  8. INEXIUM [Concomitant]
     Active Substance: ESOMEPRAZOLE
     Indication: BARRETT^S OESOPHAGUS
     Dosage: 1 DF, BID
     Route: 048
     Dates: end: 20161026
  9. INEXIUM [Concomitant]
     Active Substance: ESOMEPRAZOLE
     Dosage: 1 DF, QD
     Route: 048
     Dates: start: 201503
  10. TEGRETOL [Concomitant]
     Active Substance: CARBAMAZEPINE
     Dosage: 200 MG, BID (IN THE MORNING AND IN THE NIGHT)
     Dates: start: 2016
  11. LAROXYL [Concomitant]
     Active Substance: AMITRIPTYLINE HYDROCHLORIDE
     Dosage: 2.5 GTT, QHS TO BE INCREASED BY 5 DROPS A WEEK IF NEEDED)
     Dates: start: 201606
  12. GAVISCON [Concomitant]
     Active Substance: ALUMINUM HYDROXIDE\MAGNESIUM CARBONATE
     Dosage: UNK
     Dates: start: 20161026
  13. MILNACIPRAN - BP [Suspect]
     Active Substance: MILNACIPRAN
     Indication: FIBROMYALGIA
     Dosage: 50 MG, BID (2/DAY)
     Route: 065
     Dates: start: 20160225, end: 20160418
  14. XENAZINE [Concomitant]
     Active Substance: TETRABENAZINE
     Dosage: UNK
  15. MODOPAR [Concomitant]
     Active Substance: BENSERAZIDE HYDROCHLORIDE\LEVODOPA
     Indication: DYSKINESIA
     Dosage: 1 DF, TID (62.5/50/12.5 MG)
     Dates: start: 20161205
  16. LIORESAL [Concomitant]
     Active Substance: BACLOFEN
     Dosage: UNK
  17. LEPTICUR [Concomitant]
     Active Substance: TROPATEPINE HYDROCHLORIDE
     Dosage: 1 DF, QD
     Dates: end: 20160709
  18. ESOMEPRAZOL [Concomitant]
     Active Substance: ESOMEPRAZOLE
     Indication: HIATUS HERNIA
     Dosage: 80 MG, QD
     Route: 048
     Dates: start: 2015, end: 201609

REACTIONS (9)
  - Product use in unapproved indication [Unknown]
  - Sleep disorder [Unknown]
  - Torticollis [Not Recovered/Not Resolved]
  - Dyskinesia [Not Recovered/Not Resolved]
  - Neck pain [Not Recovered/Not Resolved]
  - Conversion disorder [Not Recovered/Not Resolved]
  - Depression [Unknown]
  - Dystonia [Not Recovered/Not Resolved]
  - Off label use [Unknown]

NARRATIVE: CASE EVENT DATE: 20160225
